FAERS Safety Report 11768782 (Version 1)
Quarter: 2015Q4

REPORT INFORMATION
  Report Type: Spontaneous
  Country: ES (occurrence: ES)
  Receive Date: 20151123
  Receipt Date: 20151123
  Transmission Date: 20160304
  Serious: Yes (Other)
  Sender: FDA-Public Use
  Company Number: PHHY2015ES148434

PATIENT
  Age: 74 Year
  Sex: Female

DRUGS (21)
  1. DIGOXIN. [Interacting]
     Active Substance: DIGOXIN
     Indication: CARDIAC FAILURE CONGESTIVE
     Dosage: 0.125 MG, QD
     Route: 065
  2. ENOXAPARIN [Interacting]
     Active Substance: ENOXAPARIN
     Indication: PRODUCT USED FOR UNKNOWN INDICATION
     Dosage: 40 MG, QD
     Route: 065
  3. METHOTREXATE [Interacting]
     Active Substance: METHOTREXATE
     Indication: PRODUCT USED FOR UNKNOWN INDICATION
     Dosage: 2.5 MG, QW
     Route: 065
  4. DIGOXIN. [Interacting]
     Active Substance: DIGOXIN
     Indication: ATRIAL FIBRILLATION
  5. PREDNISONE. [Interacting]
     Active Substance: PREDNISONE
     Indication: ERYTHRODERMIC PSORIASIS
     Route: 048
  6. FUROSEMIDE. [Interacting]
     Active Substance: FUROSEMIDE
     Indication: CHRONIC KIDNEY DISEASE
     Dosage: 60 MG, QD
     Route: 065
  7. RAMIPRIL. [Interacting]
     Active Substance: RAMIPRIL
     Indication: PRODUCT USED FOR UNKNOWN INDICATION
     Dosage: 5 MG, QD
     Route: 065
  8. HYDROCORTISONE. [Interacting]
     Active Substance: HYDROCORTISONE
     Indication: ERYTHRODERMIC PSORIASIS
     Route: 065
  9. ALPRAZOLAM. [Interacting]
     Active Substance: ALPRAZOLAM
     Indication: EUPHORIC MOOD
     Route: 065
  10. ACENOCOUMAROL [Interacting]
     Active Substance: ACENOCOUMAROL
     Indication: PRODUCT USED FOR UNKNOWN INDICATION
     Dosage: 1 MG, QD
     Route: 065
  11. CLOBETASOL [Interacting]
     Active Substance: CLOBETASOL
     Indication: PRODUCT USED FOR UNKNOWN INDICATION
     Route: 061
  12. METHYLPREDNISOLONE. [Interacting]
     Active Substance: METHYLPREDNISOLONE
     Indication: ERYTHEMA
     Route: 065
  13. METHOTREXATE [Interacting]
     Active Substance: METHOTREXATE
     Dosage: 5 MG, QW
     Route: 065
  14. FOLIC ACID. [Interacting]
     Active Substance: FOLIC ACID
     Indication: PRODUCT USED FOR UNKNOWN INDICATION
     Dosage: 5 MG, QW
     Route: 065
  15. APO-CLORAZEPATE [Interacting]
     Active Substance: CLORAZEPATE DIPOTASSIUM
     Indication: PRODUCT USED FOR UNKNOWN INDICATION
     Dosage: 5 MG, QD
     Route: 065
  16. ALPRAZOLAM. [Interacting]
     Active Substance: ALPRAZOLAM
     Indication: DISORIENTATION
  17. BISOPROLOL [Interacting]
     Active Substance: BISOPROLOL
     Dosage: 2.5 MG, QD
     Route: 065
  18. DILTIAZEM [Interacting]
     Active Substance: DILTIAZEM
     Indication: PRODUCT USED FOR UNKNOWN INDICATION
     Dosage: 120 MG, QD
     Route: 065
  19. HYDROCHLOROTHIAZIDE. [Suspect]
     Active Substance: HYDROCHLOROTHIAZIDE
     Indication: CHRONIC KIDNEY DISEASE
     Dosage: 25 MG, QD
     Route: 065
  20. BISOPROLOL [Interacting]
     Active Substance: BISOPROLOL
     Indication: PRODUCT USED FOR UNKNOWN INDICATION
     Dosage: 5 MG, QD
     Route: 065
  21. OMEPRAZOLE. [Interacting]
     Active Substance: OMEPRAZOLE
     Indication: PRODUCT USED FOR UNKNOWN INDICATION
     Dosage: 20 MG, QD
     Route: 065

REACTIONS (10)
  - Drug interaction [Unknown]
  - Disorientation [Unknown]
  - Erythema [Recovered/Resolved]
  - Toxicity to various agents [Unknown]
  - Erythrodermic psoriasis [Recovered/Resolved]
  - Euphoric mood [Unknown]
  - Somnolence [Unknown]
  - Psoriasis [Unknown]
  - Transaminases increased [Unknown]
  - Stupor [Unknown]
